FAERS Safety Report 17445257 (Version 3)
Quarter: 2020Q1

REPORT INFORMATION
  Report Type: Spontaneous
  Country: US (occurrence: US)
  Receive Date: 20200221
  Receipt Date: 20200330
  Transmission Date: 20200409
  Serious: No
  Sender: FDA-Public Use
  Company Number: US-PFIZER INC-2020078921

PATIENT
  Age: 52 Year
  Sex: Male

DRUGS (1)
  1. XELJANZ XR [Suspect]
     Active Substance: TOFACITINIB CITRATE
     Dosage: 11 MG, UNK
     Dates: start: 20190813

REACTIONS (6)
  - Abdominal discomfort [Unknown]
  - Influenza [Unknown]
  - Nasopharyngitis [Unknown]
  - Headache [Unknown]
  - Hyperaesthesia [Unknown]
  - Infection [Unknown]
